FAERS Safety Report 19220644 (Version 2)
Quarter: 2021Q2

REPORT INFORMATION
  Report Type: Report from Study
  Country: GB (occurrence: GB)
  Receive Date: 20210505
  Receipt Date: 20210520
  Transmission Date: 20210717
  Serious: Yes (Other)
  Sender: FDA-Public Use
  Company Number: GB-IPSEN BIOPHARMACEUTICALS, INC.-2021-08490

PATIENT
  Sex: Female

DRUGS (1)
  1. SOMATULINE AUTOGEL [Suspect]
     Active Substance: LANREOTIDE ACETATE
     Indication: NEUROENDOCRINE TUMOUR
     Dosage: 120 MG/0.5ML
     Route: 058

REACTIONS (8)
  - Fatigue [Unknown]
  - Abdominal pain [Unknown]
  - Diarrhoea [Unknown]
  - Alopecia [Unknown]
  - Adverse drug reaction [Unknown]
  - Myalgia [Unknown]
  - Tumour excision [Unknown]
  - Haemorrhoids [Unknown]
